FAERS Safety Report 6136771-6 (Version None)
Quarter: 2009Q1

REPORT INFORMATION
  Report Type: 
  Country: None (occurrence: None)
  Receive Date: 20090330
  Receipt Date: 20090319
  Transmission Date: 20090719
  Serious: Yes (Life-Threatening, Hospitalization)
  Sender: FDA-Public Use
  Company Number: BR-JNJFOC-20090306069

PATIENT
  Sex: Male
  Weight: 103 kg

DRUGS (3)
  1. REMICADE [Suspect]
     Dosage: 3 INFUSIONS TOTAL
     Route: 042
  2. REMICADE [Suspect]
     Route: 042
  3. REMICADE [Suspect]
     Indication: PSORIASIS
     Route: 042

REACTIONS (1)
  - GASTROINTESTINAL STROMAL TUMOUR [None]
